APPROVED DRUG PRODUCT: WELLCOVORIN
Active Ingredient: LEUCOVORIN CALCIUM
Strength: EQ 25MG BASE **Federal Register determination that product was not discontinued or withdrawn for safety or effectiveness reasons**
Dosage Form/Route: TABLET;ORAL
Application: N018342 | Product #002
Applicant: GLAXOSMITHKLINE
Approved: Jul 8, 1983 | RLD: Yes | RS: No | Type: DISCN